FAERS Safety Report 21009117 (Version 1)
Quarter: 2022Q2

REPORT INFORMATION
  Report Type: Report from Study
  Country: BR (occurrence: BR)
  Receive Date: 20220627
  Receipt Date: 20220627
  Transmission Date: 20220721
  Serious: Yes (Hospitalization)
  Sender: FDA-Public Use
  Company Number: BR-MYLANLABS-2022M1048049

PATIENT
  Sex: Male
  Weight: 2690 kg

DRUGS (2)
  1. AMPICILLIN [Suspect]
     Active Substance: AMPICILLIN
     Indication: Antibiotic therapy
     Dosage: 500 MILLIGRAM
     Route: 065
  2. GENTAMICIN [Suspect]
     Active Substance: GENTAMICIN
     Indication: Antibiotic therapy
     Dosage: 20 MILLIGRAM
     Route: 065

REACTIONS (7)
  - Macrocytosis [Unknown]
  - Anisocytosis [Unknown]
  - Neutrophilia [Unknown]
  - Polycythaemia [Unknown]
  - Lymphocytosis [Unknown]
  - Metabolic acidosis [Unknown]
  - Red blood cell hyperchromic morphology [Unknown]
